FAERS Safety Report 18000717 (Version 2)
Quarter: 2020Q3

REPORT INFORMATION
  Report Type: Spontaneous
  Country: ES (occurrence: ES)
  Receive Date: 20200709
  Receipt Date: 20200717
  Transmission Date: 20201103
  Serious: Yes (Life-Threatening, Hospitalization, Disabling, Other)
  Sender: FDA-Public Use
  Company Number: ES-VALIDUS PHARMACEUTICALS LLC-ES-2020VAL000562

PATIENT

DRUGS (3)
  1. DEXKETOPROFEN TROMETAMOL [Suspect]
     Active Substance: DEXKETOPROFEN TROMETAMOL
     Indication: FISTULA
     Dosage: UNK
     Route: 048
     Dates: start: 20161007, end: 20161013
  2. VANCOMYCIN [Suspect]
     Active Substance: VANCOMYCIN
     Indication: FISTULA
     Dosage: 2 G, Q8H
     Route: 042
     Dates: start: 20161007, end: 20161013
  3. CEFOTAXIME SODIUM [Suspect]
     Active Substance: CEFOTAXIME SODIUM
     Indication: FISTULA
     Dosage: UNK
     Route: 042
     Dates: start: 20161007, end: 20161013

REACTIONS (1)
  - Toxic epidermal necrolysis [Recovered/Resolved with Sequelae]

NARRATIVE: CASE EVENT DATE: 20161012
